FAERS Safety Report 8629077 (Version 2)
Quarter: 2012Q4

REPORT INFORMATION
  Report Type: 
  Country: TR (occurrence: TR)
  Receive Date: 20120621
  Receipt Date: 20120929
  Transmission Date: 20130627
  Serious: Yes (Other)
  Sender: FDA-Public Use
  Company Number: PHHY2011TR116943

PATIENT
  Age: 84 Year
  Sex: Male

DRUGS (3)
  1. EXELON PATCH [Suspect]
  2. MEMANTINE HYDROCHLORIDE [Concomitant]
  3. SEROQUEL [Concomitant]

REACTIONS (1)
  - Prostatic disorder [Unknown]
